FAERS Safety Report 7636819-3 (Version None)
Quarter: 2011Q3

REPORT INFORMATION
  Report Type: 
  Country: None (occurrence: None)
  Receive Date: 20110726
  Receipt Date: 20110711
  Transmission Date: 20111222
  Serious: Yes (Hospitalization)
  Sender: FDA-Public Use
  Company Number: US-WATSON-2011-11128

PATIENT
  Age: 63 Year
  Sex: Male

DRUGS (1)
  1. VALPROATE SODIUM [Suspect]
     Indication: BIPOLAR DISORDER
     Dosage: 1000 MG, DAILY

REACTIONS (1)
  - SECONDARY ADRENOCORTICAL INSUFFICIENCY [None]
